FAERS Safety Report 7304738-8 (Version None)
Quarter: 2011Q1

REPORT INFORMATION
  Report Type: 
  Country: None (occurrence: None)
  Receive Date: 20110222
  Receipt Date: 20110216
  Transmission Date: 20110831
  Serious: No
  Sender: FDA-Public Use
  Company Number: US-PFIZER INC-2011035267

PATIENT
  Sex: Female

DRUGS (2)
  1. EFFEXOR XR [Suspect]
     Dosage: 1 DF, 1X/DAY
     Dates: start: 20110201
  2. EFFEXOR XR [Suspect]
     Dosage: 75 MG, 2X/DAY
     Dates: start: 19990101

REACTIONS (4)
  - RASH [None]
  - PRURITUS [None]
  - FEELING ABNORMAL [None]
  - URTICARIA [None]
